FAERS Safety Report 17141735 (Version 1)
Quarter: 2019Q4

REPORT INFORMATION
  Report Type: Spontaneous
  Country: US (occurrence: US)
  Receive Date: 20191211
  Receipt Date: 20191211
  Transmission Date: 20200122
  Serious: No
  Sender: FDA-Public Use
  Company Number: US-ACTELION-A-NJ2019-198940

PATIENT
  Sex: Female
  Weight: 103.86 kg

DRUGS (4)
  1. VENTAVIS [Suspect]
     Active Substance: ILOPROST
     Indication: PULMONARY ARTERIAL HYPERTENSION
     Dosage: 5.0 MCG, 6-9X PER DAY
     Route: 055
  2. TADALAFIL. [Concomitant]
     Active Substance: TADALAFIL
     Dosage: UNK
  3. TRACLEER [Suspect]
     Active Substance: BOSENTAN
     Indication: PULMONARY ARTERIAL HYPERTENSION
     Dosage: 125 MCG, BID
     Route: 048
  4. BOSENTAN. [Concomitant]
     Active Substance: BOSENTAN
     Dosage: UNK

REACTIONS (1)
  - Dry eye [Unknown]
